FAERS Safety Report 9111444 (Version 1)
Quarter: 2013Q1

REPORT INFORMATION
  Report Type: Spontaneous
  Country: US (occurrence: US)
  Receive Date: 20130219
  Receipt Date: 20130219
  Transmission Date: 20140127
  Serious: No
  Sender: FDA-Public Use
  Company Number: US-BRISTOL-MYERS SQUIBB COMPANY-16613572

PATIENT
  Age: 54 Year
  Sex: Female

DRUGS (2)
  1. ORENCIA [Suspect]
     Indication: RHEUMATOID ARTHRITIS
     Dosage: LAST INF:4, LAST INF ON 15MAY12
     Route: 042
  2. STEROIDS [Concomitant]

REACTIONS (2)
  - Pain [Unknown]
  - Joint swelling [Unknown]
